FAERS Safety Report 6443425-5 (Version None)
Quarter: 2009Q4

REPORT INFORMATION
  Report Type: 
  Country: None (occurrence: None)
  Receive Date: 20091117
  Receipt Date: 20091117
  Transmission Date: 20100525
  Serious: Yes (Other)
  Sender: FDA-Public Use
  Company Number: US-PFIZER INC-2009279073

PATIENT

DRUGS (1)
  1. CELEBREX [Suspect]

REACTIONS (1)
  - GASTROINTESTINAL TUBE INSERTION [None]
